FAERS Safety Report 5262392-3 (Version None)
Quarter: 2007Q1

REPORT INFORMATION
  Report Type: 
  Country: None (occurrence: None)
  Receive Date: 20070309
  Receipt Date: 20070309
  Transmission Date: 20070707
  Serious: No
  Sender: FDA-Public Use
  Company Number: None

PATIENT
  Age: 49 Year
  Sex: Male
  Weight: 78 kg

DRUGS (2)
  1. PEGASYS [Suspect]
     Dosage: 180 MCG WEEKLY SQ
     Route: 058
  2. RIBAVIRIN [Suspect]
     Dosage: 1000MG DAILY PO
     Route: 048

REACTIONS (2)
  - NEUTROPENIA [None]
  - RED BLOOD CELL COUNT DECREASED [None]
